FAERS Safety Report 7755335-1 (Version None)
Quarter: 2011Q3

REPORT INFORMATION
  Report Type: 
  Country: None (occurrence: None)
  Receive Date: 20110916
  Receipt Date: 20110323
  Transmission Date: 20111222
  Serious: No
  Sender: FDA-Public Use
  Company Number: US-PFIZER INC-2011065728

PATIENT

DRUGS (1)
  1. PREMARIN [Suspect]
     Dosage: 0.3 MG, UNK

REACTIONS (1)
  - HOT FLUSH [None]
